FAERS Safety Report 8044134-1 (Version None)
Quarter: 2012Q1

REPORT INFORMATION
  Report Type: 
  Country: None (occurrence: None)
  Receive Date: 20120113
  Receipt Date: 20120106
  Transmission Date: 20120608
  Serious: Yes (Other)
  Sender: FDA-Public Use
  Company Number: PHFR2011GB06052

PATIENT
  Sex: Male

DRUGS (6)
  1. EXJADE [Suspect]
     Indication: IRON OVERLOAD
     Dosage: 1 G, DAILY
     Dates: start: 20110420
  2. LOPERAMIDE [Concomitant]
  3. METFORMIN HCL [Concomitant]
  4. ACETYLSALICYLIC ACID SRT [Concomitant]
  5. BISOPROLOL FUMARATE [Concomitant]
  6. RAMIPRIL [Concomitant]

REACTIONS (7)
  - ANAEMIA [None]
  - PROCTALGIA [None]
  - ANGINA PECTORIS [None]
  - RECTAL HAEMORRHAGE [None]
  - STOOL PH DECREASED [None]
  - DIARRHOEA [None]
  - BURNING SENSATION [None]
